FAERS Safety Report 17264417 (Version 1)
Quarter: 2020Q3

REPORT INFORMATION
  Report Type: Spontaneous
  Country: US (occurrence: US)
  Receive Date: 20200113
  Receipt Date: 20200113
  Transmission Date: 20201104
  Serious: Yes (Death, Hospitalization, Other)
  Sender: FDA-Public Use
  Company Number: US-BAYER-2020-003294

PATIENT
  Age: 16 Year
  Sex: Female

DRUGS (2)
  1. ACETYLSALICYLIC ACID [Suspect]
     Active Substance: ASPIRIN
     Route: 048
  2. FERROUS SULFATE. [Suspect]
     Active Substance: FERROUS SULFATE

REACTIONS (16)
  - Lethargy [None]
  - International normalised ratio increased [None]
  - Drug-induced liver injury [None]
  - Coagulation factor V level decreased [None]
  - Endotracheal intubation [Recovered/Resolved]
  - Toxicity to various agents [Fatal]
  - Diarrhoea haemorrhagic [None]
  - Hypoglycaemia [None]
  - Vomiting [None]
  - Intestinal perforation [None]
  - Alanine aminotransferase increased [None]
  - Unresponsive to stimuli [Recovered/Resolved]
  - Lower gastrointestinal haemorrhage [None]
  - Pallor [None]
  - Hypotension [None]
  - Aspartate aminotransferase increased [None]
